FAERS Safety Report 6933259-7 (Version None)
Quarter: 2010Q3

REPORT INFORMATION
  Report Type: 
  Country: None (occurrence: None)
  Receive Date: 20100818
  Receipt Date: 20100818
  Transmission Date: 20110219
  Serious: Yes (Other)
  Sender: FDA-Public Use
  Company Number: None

PATIENT
  Sex: Female

DRUGS (1)
  1. SIMVASTATIN [Suspect]
     Indication: BLOOD PRESSURE ABNORMAL
     Dosage: 20MG QD PO
     Route: 048
     Dates: start: 20091101, end: 20100614

REACTIONS (2)
  - MOBILITY DECREASED [None]
  - PAIN IN EXTREMITY [None]
